FAERS Safety Report 10049331 (Version 1)
Quarter: 2014Q2

REPORT INFORMATION
  Report Type: Spontaneous
  Country: BR (occurrence: BR)
  Receive Date: 20140401
  Receipt Date: 20140401
  Transmission Date: 20141212
  Serious: Yes (Other)
  Sender: FDA-Public Use
  Company Number: BR-ROCHE-1371666

PATIENT
  Sex: Female
  Weight: 65 kg

DRUGS (8)
  1. XELODA [Suspect]
     Indication: BREAST CANCER
     Route: 065
     Dates: start: 2012
  2. XELODA [Suspect]
     Dosage: FOR 14DAYS, AND A PAUSE OF 7 DAYS
     Route: 048
     Dates: start: 20140324
  3. LOSARTAN [Concomitant]
     Indication: HYPERTENSION
     Dosage: 2 TABLETS
     Route: 065
  4. OMEPRAZOLE [Concomitant]
     Dosage: 1 TABLET
     Route: 065
  5. ASPIRIN [Concomitant]
     Indication: CEREBROVASCULAR ACCIDENT
     Dosage: 1 TABLET
     Route: 065
  6. AMLODIPINE [Concomitant]
     Indication: HYPERTENSION
     Dosage: 1 TABLET
     Route: 065
  7. SIMVASTATIN [Concomitant]
     Indication: CEREBROVASCULAR ACCIDENT
     Dosage: 1 TABLET
     Route: 065
  8. ANASTROZOLE [Concomitant]

REACTIONS (3)
  - Breast neoplasm [Not Recovered/Not Resolved]
  - Palmar-plantar erythrodysaesthesia syndrome [Recovered/Resolved]
  - Wrong technique in drug usage process [Unknown]
